FAERS Safety Report 7635271-1 (Version None)
Quarter: 2011Q3

REPORT INFORMATION
  Report Type: 
  Country: None (occurrence: None)
  Receive Date: 20110718
  Receipt Date: 20110701
  Transmission Date: 20111222
  Serious: Yes (Other)
  Sender: FDA-Public Use
  Company Number: AUR-APL-2011-03886

PATIENT
  Age: 72 Year
  Sex: Female
  Weight: 63.5036 kg

DRUGS (3)
  1. SIMVASTATIN [Suspect]
     Indication: BLOOD CHOLESTEROL INCREASED
     Dosage: (20 MG),ORAL
     Route: 048
     Dates: start: 20110101, end: 20110415
  2. METOPROLOL TARTRATE [Concomitant]
  3. ENALAPRIL MALEATE [Concomitant]

REACTIONS (6)
  - ALOPECIA [None]
  - PRURITUS [None]
  - DRY SKIN [None]
  - FORMICATION [None]
  - DERMATITIS [None]
  - NERVE INJURY [None]
